FAERS Safety Report 15504209 (Version 1)
Quarter: 2018Q4

REPORT INFORMATION
  Report Type: Spontaneous
  Country: US (occurrence: US)
  Receive Date: 20181009
  Receipt Date: 20181009
  Transmission Date: 20190205
  Serious: Yes (Death)
  Sender: FDA-Public Use
  Company Number: None

PATIENT
  Age: 70 Year
  Sex: Female
  Weight: 63.8 kg

DRUGS (2)
  1. AVASTIN [Suspect]
     Active Substance: BEVACIZUMAB
     Indication: BREAST CANCER METASTATIC
     Route: 042
     Dates: start: 20180810, end: 20180812
  2. ABRAXANE [Concomitant]
     Active Substance: PACLITAXEL
     Dates: start: 20180810

REACTIONS (9)
  - Oesophageal rupture [None]
  - Pulseless electrical activity [None]
  - Cardiac arrest [None]
  - Refusal of treatment by patient [None]
  - Dysphagia [None]
  - Dysphonia [None]
  - Respiratory failure [None]
  - Back pain [None]
  - Vocal cord paralysis [None]

NARRATIVE: CASE EVENT DATE: 20180812
